FAERS Safety Report 6987475-9 (Version None)
Quarter: 2010Q3

REPORT INFORMATION
  Report Type: 
  Country: None (occurrence: None)
  Receive Date: 20100916
  Receipt Date: 20100914
  Transmission Date: 20110219
  Serious: Yes (Other)
  Sender: FDA-Public Use
  Company Number: US-BRISTOL-MYERS SQUIBB COMPANY-15284961

PATIENT
  Age: 58 Year
  Sex: Female

DRUGS (5)
  1. ERBITUX [Suspect]
     Dates: start: 20100524
  2. IRINOTECAN HCL [Suspect]
  3. LABETALOL HCL [Concomitant]
  4. NIFEDIPINE [Concomitant]
  5. ARANESP [Concomitant]

REACTIONS (4)
  - FALL [None]
  - FOOT FRACTURE [None]
  - PLATELET COUNT DECREASED [None]
  - RASH [None]
